FAERS Safety Report 16701857 (Version 3)
Quarter: 2020Q1

REPORT INFORMATION
  Report Type: Report from Study
  Country: DE (occurrence: DE)
  Receive Date: 20190814
  Receipt Date: 20200212
  Transmission Date: 20200409
  Serious: Yes (Death, Other)
  Sender: FDA-Public Use
  Company Number: DE-AUROBINDO-AUR-APL-2019-053217

PATIENT
  Age: 17 Year
  Sex: Male
  Weight: 105 kg

DRUGS (5)
  1. CITALOPRAM [Interacting]
     Active Substance: CITALOPRAM HYDROBROMIDE
     Indication: PRODUCT USED FOR UNKNOWN INDICATION
     Dosage: UNK
     Route: 065
  2. NALOXONE;TILIDINE [Interacting]
     Active Substance: NALOXONE HYDROCHLORIDE\TILIDINE HYDROCHLORIDE
     Indication: PRODUCT USED FOR UNKNOWN INDICATION
     Dosage: UNK
     Route: 065
  3. TILIDINE [Interacting]
     Active Substance: TILIDINE
     Indication: PRODUCT USED FOR UNKNOWN INDICATION
     Dosage: UNK
     Route: 065
  4. FENTANYL TRANSDERMAL SYSTEM [Interacting]
     Active Substance: FENTANYL
     Indication: PRODUCT USED FOR UNKNOWN INDICATION
     Dosage: 100 MICROGRAM/HOUR (THREE PATCHES OF 100 UG/H EACH - TOTAL: 300 UG/H)
     Route: 062
  5. VALSARTAN. [Suspect]
     Active Substance: VALSARTAN
     Indication: PRODUCT USED FOR UNKNOWN INDICATION
     Dosage: UNK
     Route: 065

REACTIONS (8)
  - Toxicity to various agents [Fatal]
  - Pulmonary oedema [Fatal]
  - Prescription drug used without a prescription [Fatal]
  - Intentional product misuse [Fatal]
  - Urinary retention [Fatal]
  - Brain oedema [Fatal]
  - Drug intolerance [Unknown]
  - Drug interaction [Fatal]
